FAERS Safety Report 9132779 (Version 3)
Quarter: 2013Q3

REPORT INFORMATION
  Report Type: Report from Study
  Country: ES (occurrence: ES)
  Receive Date: 20130301
  Receipt Date: 20130830
  Transmission Date: 20140515
  Serious: Yes (Other)
  Sender: FDA-Public Use
  Company Number: ES-GLAXOSMITHKLINE-B0871168A

PATIENT
  Age: 47 Year
  Sex: Male
  Weight: 65 kg

DRUGS (13)
  1. OFATUMUMAB [Suspect]
     Indication: CHRONIC LYMPHOCYTIC LEUKAEMIA
     Route: 042
     Dates: start: 20130123
  2. PENTAMIDINE [Concomitant]
     Indication: ANTIFUNGAL PROPHYLAXIS
     Dosage: 300MG PER DAY
     Route: 055
     Dates: start: 20130211
  3. ONDANSETRON [Concomitant]
     Indication: NAUSEA
     Dosage: 8MG THREE TIMES PER DAY
     Route: 042
     Dates: start: 20130205
  4. MAGNESIUM SULFATE [Concomitant]
     Dosage: 1.5MG TWICE PER DAY
     Route: 042
     Dates: start: 20130209
  5. CIPROFLOXACIN [Concomitant]
     Indication: INFECTION PROPHYLAXIS
     Dosage: 1000MG PER DAY
     Route: 048
     Dates: start: 20130208, end: 20130212
  6. ACICLOVIR [Concomitant]
     Dosage: 750MG THREE TIMES PER DAY
     Route: 042
     Dates: start: 20130208
  7. CYCLOSPORIN [Concomitant]
     Indication: PROPHYLAXIS AGAINST GRAFT VERSUS HOST DISEASE
     Dosage: 100MG TWICE PER DAY
     Route: 042
     Dates: start: 20130209
  8. POSACONAZOLE [Concomitant]
     Indication: ANTIFUNGAL PROPHYLAXIS
     Dosage: 600MG PER DAY
     Route: 048
     Dates: start: 20130211
  9. METOCLOPRAMIDE [Concomitant]
     Indication: NAUSEA
     Dosage: 30MG PER DAY
     Route: 042
     Dates: start: 20130211
  10. FUROSEMIDE [Concomitant]
     Dosage: 20MG THREE TIMES PER DAY
     Route: 042
     Dates: start: 20130205, end: 20130212
  11. MYCOPHENOLATE [Concomitant]
     Indication: ANTIFUNGAL PROPHYLAXIS
     Route: 042
     Dates: start: 20130212
  12. ALLOPURINOL [Concomitant]
     Indication: TUMOUR LYSIS SYNDROME
     Dosage: 300MG PER DAY
     Route: 048
     Dates: start: 20130205, end: 20130212
  13. RANITIDINE [Concomitant]
     Indication: PROPHYLAXIS
     Dosage: 300MG PER DAY
     Route: 048
     Dates: start: 20130205

REACTIONS (1)
  - Hyperbilirubinaemia [Recovered/Resolved]
